FAERS Safety Report 5224585-0 (Version None)
Quarter: 2007Q1

REPORT INFORMATION
  Report Type: 
  Country: None (occurrence: None)
  Receive Date: 20070126
  Receipt Date: 20061130
  Transmission Date: 20070707
  Serious: Yes (Death)
  Sender: FDA-Public Use
  Company Number: T200601578

PATIENT

DRUGS (2)
  1. MEPERIDINE HCL [Suspect]
     Dosage: ORAL
     Route: 048
  2. PROPOXYPHENE/ACETAMINOPHEN (PROPOXYPHENE NAPSYLATE, ACETAMINOPHEN) TAB [Suspect]
     Dosage: ORAL
     Route: 048

REACTIONS (2)
  - CARDIO-RESPIRATORY ARREST [None]
  - COMPLETED SUICIDE [None]
